FAERS Safety Report 13031156 (Version 1)
Quarter: 2016Q4

REPORT INFORMATION
  Report Type: Spontaneous
  Country: US (occurrence: US)
  Receive Date: 20161215
  Receipt Date: 20161215
  Transmission Date: 20170207
  Serious: Yes (Life-Threatening, Hospitalization, Other)
  Sender: FDA-Public Use
  Company Number: US-SAOL THERAPEUTICS-2016SAO01039

PATIENT
  Age: 29 Year
  Sex: Male
  Weight: 65.31 kg

DRUGS (4)
  1. LIORESAL [Suspect]
     Active Substance: BACLOFEN
     Indication: MUSCLE SPASTICITY
     Dosage: UNK
     Dates: start: 2009
  2. LIORESAL [Suspect]
     Active Substance: BACLOFEN
     Indication: HEAD INJURY
     Dosage: 100 MCG SINGLE DOSE
     Dates: start: 20160919, end: 20160919
  3. LIORESAL [Suspect]
     Active Substance: BACLOFEN
     Dosage: 12 ?G, \DAY
     Route: 037
     Dates: start: 2016
  4. SUFENTA [Suspect]
     Active Substance: SUFENTANIL CITRATE
     Dosage: 20 ?G, ONCE
     Route: 037
     Dates: start: 20160919, end: 20160919

REACTIONS (5)
  - Respiratory depression [Recovered/Resolved]
  - Therapeutic response decreased [Unknown]
  - Pneumonia aspiration [Recovered/Resolved]
  - Overdose [Recovered/Resolved]
  - Depressed level of consciousness [Recovered/Resolved]

NARRATIVE: CASE EVENT DATE: 201609
